FAERS Safety Report 7967209-1 (Version None)
Quarter: 2011Q4

REPORT INFORMATION
  Report Type: 
  Country: None (occurrence: None)
  Receive Date: 20111209
  Receipt Date: 20111130
  Transmission Date: 20120403
  Serious: Yes (Other)
  Sender: FDA-Public Use
  Company Number: US-JNJFOC-20111200664

PATIENT

DRUGS (1)
  1. REMICADE [Suspect]
     Indication: CROHN'S DISEASE
     Route: 042

REACTIONS (5)
  - RED BLOOD CELL ABNORMALITY [None]
  - DNA ANTIBODY POSITIVE [None]
  - COMPLEMENT FACTOR C3 INCREASED [None]
  - HEPATIC STEATOSIS [None]
  - COMPLEMENT FACTOR C4 INCREASED [None]
